FAERS Safety Report 23777517 (Version 1)
Quarter: 2024Q2

REPORT INFORMATION
  Report Type: Spontaneous
  Country: US (occurrence: US)
  Receive Date: 20240424
  Receipt Date: 20240424
  Transmission Date: 20240716
  Serious: No
  Sender: FDA-Public Use
  Company Number: US-TEVA-VS-3184449

PATIENT
  Age: 71 Year
  Sex: Male

DRUGS (1)
  1. AUSTEDO XR [Suspect]
     Active Substance: DEUTETRABENAZINE
     Indication: Chorea
     Dosage: 12MG + 24 MG ONCE DAILY (TDD 36 MG)
     Route: 065

REACTIONS (1)
  - Drug ineffective [Unknown]
